FAERS Safety Report 12368551 (Version 1)
Quarter: 2016Q2

REPORT INFORMATION
  Report Type: Spontaneous
  Country: US (occurrence: US)
  Receive Date: 20160513
  Receipt Date: 20160513
  Transmission Date: 20160815
  Serious: No
  Sender: FDA-Public Use
  Company Number: US-JNJFOC-20160410259

PATIENT
  Age: 57 Year
  Sex: Female
  Weight: 40.82 kg

DRUGS (7)
  1. WOMENS ROGAINE [Suspect]
     Active Substance: MINOXIDIL
     Route: 061
  2. KLONOPIN [Concomitant]
     Active Substance: CLONAZEPAM
     Indication: ANXIETY
     Dosage: 4 YEARS
     Route: 065
  3. WOMENS ROGAINE [Suspect]
     Active Substance: MINOXIDIL
     Indication: ALOPECIA
     Dosage: DAILY
     Route: 061
  4. ALL OTHER THERAPEUTIC PRODUCTS [Concomitant]
     Active Substance: UNSPECIFIED INGREDIENT
     Indication: ANXIETY
     Dosage: 4 YEARS
     Route: 065
  5. ALL OTHER THERAPEUTIC PRODUCTS [Concomitant]
     Active Substance: UNSPECIFIED INGREDIENT
     Indication: ROUTINE HEALTH MAINTENANCE
     Route: 065
  6. ALL OTHER THERAPEUTIC PRODUCTS [Concomitant]
     Active Substance: UNSPECIFIED INGREDIENT
     Indication: ROUTINE HEALTH MAINTENANCE
     Route: 065
  7. ESTROTEST [Concomitant]
     Indication: HORMONE REPLACEMENT THERAPY
     Dosage: 1.25-2.5MG 28 YEARS
     Route: 065

REACTIONS (1)
  - Drug ineffective [Unknown]
